FAERS Safety Report 7488226-4 (Version None)
Quarter: 2011Q2

REPORT INFORMATION
  Report Type: 
  Country: None (occurrence: None)
  Receive Date: 20110518
  Receipt Date: 20110425
  Transmission Date: 20111010
  Serious: No
  Sender: FDA-Public Use
  Company Number: JP-ROCHE-777418

PATIENT
  Age: 16 Year

DRUGS (2)
  1. TAMIFLU [Suspect]
     Indication: INFLUENZA
     Route: 048
     Dates: start: 20110423, end: 20110423
  2. TAMIFLU [Suspect]
     Route: 048
     Dates: start: 20110424, end: 20110424

REACTIONS (2)
  - ABNORMAL BEHAVIOUR [None]
  - DRUG PRESCRIBING ERROR [None]
